FAERS Safety Report 20767436 (Version 1)
Quarter: 2022Q2

REPORT INFORMATION
  Report Type: Spontaneous
  Country: US (occurrence: US)
  Receive Date: 20220429
  Receipt Date: 20220429
  Transmission Date: 20220721
  Serious: Yes (Other)
  Sender: FDA-Public Use
  Company Number: US-JNJFOC-20220449546

PATIENT

DRUGS (1)
  1. BENADRYL [Suspect]
     Active Substance: DIPHENHYDRAMINE HYDROCHLORIDE
     Indication: Allergy to arthropod sting
     Dosage: ONE PILL
     Route: 065

REACTIONS (4)
  - Loss of consciousness [Recovered/Resolved]
  - Product use in unapproved indication [Recovered/Resolved]
  - Memory impairment [Recovered/Resolved]
  - Therapeutic response unexpected [Unknown]
